FAERS Safety Report 8902693 (Version 1)
Quarter: 2012Q4

REPORT INFORMATION
  Report Type: 
  Country: US (occurrence: US)
  Receive Date: 20121112
  Receipt Date: 20121112
  Transmission Date: 20130627
  Serious: Yes (Other)
  Sender: FDA-Public Use
  Company Number: US-ROCHE-1151357

PATIENT
  Sex: Female

DRUGS (2)
  1. LUCENTIS [Suspect]
     Indication: MACULOPATHY
     Route: 065
  2. AVASTIN [Suspect]
     Indication: MACULOPATHY
     Route: 065

REACTIONS (9)
  - Ocular icterus [Unknown]
  - Visual impairment [Unknown]
  - Retinal injury [Unknown]
  - Photopsia [Unknown]
  - Visual impairment [Unknown]
  - Hallucination, visual [Unknown]
  - Vitreous floaters [Unknown]
  - Feeling abnormal [Unknown]
  - Headache [Unknown]
